FAERS Safety Report 20966540 (Version 1)
Quarter: 2022Q2

REPORT INFORMATION
  Report Type: Spontaneous
  Country: US (occurrence: US)
  Receive Date: 20220616
  Receipt Date: 20220616
  Transmission Date: 20220721
  Serious: Yes (Death, Hospitalization)
  Sender: FDA-Public Use
  Company Number: US-MYLANLABS-2022M1045179

PATIENT
  Age: 85 Year
  Sex: Female

DRUGS (15)
  1. ETOPOSIDE [Suspect]
     Active Substance: ETOPOSIDE
     Indication: Diffuse large B-cell lymphoma
     Dosage: UNK
  2. DOXORUBICIN [Suspect]
     Active Substance: DOXORUBICIN
     Indication: Diffuse large B-cell lymphoma
     Dosage: UNK
  3. AZITHROMYCIN [Suspect]
     Active Substance: AZITHROMYCIN
     Indication: Cryptosporidiosis infection
     Dosage: 500 MILLIGRAM, QD
  4. PREDNISONE [Suspect]
     Active Substance: PREDNISONE
     Indication: Diffuse large B-cell lymphoma
     Dosage: UNK
  5. VINCRISTINE [Suspect]
     Active Substance: VINCRISTINE
     Indication: Diffuse large B-cell lymphoma
     Dosage: UNK
  6. CYCLOPHOSPHAMIDE [Suspect]
     Active Substance: CYCLOPHOSPHAMIDE
     Indication: Diffuse large B-cell lymphoma
     Dosage: UNK
  7. BENDAMUSTINE [Suspect]
     Active Substance: BENDAMUSTINE
     Indication: Diffuse large B-cell lymphoma
     Dosage: UNK, OVER 9 YEARS
  8. RITUXIMAB [Suspect]
     Active Substance: RITUXIMAB
     Indication: Diffuse large B-cell lymphoma
     Dosage: UNK
  9. LISOCABTAGENE MARALEUCEL [Suspect]
     Active Substance: LISOCABTAGENE MARALEUCEL
     Indication: Diffuse large B-cell lymphoma
     Dosage: UNK
  10. NITAZOXANIDE [Suspect]
     Active Substance: NITAZOXANIDE
     Indication: Cryptosporidiosis infection
     Dosage: 500 MILLIGRAM, BID
  11. PAROMOMYCIN [Suspect]
     Active Substance: PAROMOMYCIN
     Indication: Cryptosporidiosis infection
     Dosage: 500 MILLIGRAM, QID
  12. DIETARY SUPPLEMENT [Suspect]
     Active Substance: DIETARY SUPPLEMENT
     Indication: Cryptosporidiosis infection
     Dosage: UNK, 4G-35 KCAL/7G (THREE TIMES DAILY)
     Route: 048
  13. CLOFAZIMINE [Suspect]
     Active Substance: CLOFAZIMINE
     Indication: Cryptosporidiosis infection
     Dosage: 100 MILLIGRAM, Q8H, FOR 5 DAYS
  14. CLOFAZIMINE [Suspect]
     Active Substance: CLOFAZIMINE
     Dosage: 100 MILLIGRAM, QD, MAINTENANCE DOSE
  15. RIFAXIMIN [Suspect]
     Active Substance: RIFAXIMIN
     Indication: Cryptosporidiosis infection
     Dosage: 550 MILLIGRAM, TID

REACTIONS (1)
  - Treatment failure [Fatal]
